FAERS Safety Report 14912969 (Version 2)
Quarter: 2018Q2

REPORT INFORMATION
  Report Type: Report from Study
  Country: US (occurrence: US)
  Receive Date: 20180518
  Receipt Date: 20180518
  Transmission Date: 20180711
  Serious: Yes (Other)
  Sender: FDA-Public Use
  Company Number: PHHO2016US010365

PATIENT
  Age: 69 Year
  Sex: Male
  Weight: 68.7 kg

DRUGS (5)
  1. FARYDAK [Suspect]
     Active Substance: PANOBINOSTAT
     Dosage: 10 MG ON MONDAYS, WEDNESDAYS, FRIDAYS X 2WEEKS (DAYS, 1, 3, 5, 8, 10, 12 EVERY 21 DAYS)
     Route: 048
     Dates: start: 20160811
  2. LENALIDOMIDE [Suspect]
     Active Substance: LENALIDOMIDE
     Indication: PLASMA CELL MYELOMA
     Dosage: 10 MG, 1 TO 14 DAYS EVERY 21 DAYS
     Route: 048
     Dates: start: 20160620, end: 20160808
  3. FARYDAK [Suspect]
     Active Substance: PANOBINOSTAT
     Indication: PLASMA CELL MYELOMA
     Dosage: 10 MG ON MONDAYS, WEDNESDAYS, FRIDAYS X 2WEEKS (DAYS, 1, 3, 5, 8, 10, 12 EVERY 21 DAYS)
     Route: 048
     Dates: start: 20160620, end: 20160808
  4. DEXAMETHASONE. [Suspect]
     Active Substance: DEXAMETHASONE
     Indication: PLASMA CELL MYELOMA
     Dosage: 20 MG/M2, ON DAY OF VELCADE INFUSION AND  DAY AFTER VELCADE INFUSION
     Route: 048
     Dates: start: 20160620, end: 20160808
  5. BORTEZOMIB [Suspect]
     Active Substance: BORTEZOMIB
     Indication: PLASMA CELL MYELOMA
     Dosage: 1.0 MG, ON DAYS 1,4,8,11
     Route: 058
     Dates: start: 20160620, end: 20160808

REACTIONS (3)
  - Thrombocytopenia [Unknown]
  - Thrombocytopenia [Recovered/Resolved]
  - Thrombocytopenia [Recovered/Resolved]

NARRATIVE: CASE EVENT DATE: 20160718
